FAERS Safety Report 18343524 (Version 3)
Quarter: 2020Q4

REPORT INFORMATION
  Report Type: Spontaneous
  Country: US (occurrence: US)
  Receive Date: 20201005
  Receipt Date: 20201029
  Transmission Date: 20210113
  Serious: No
  Sender: FDA-Public Use
  Company Number: US-PFIZER INC-2020380831

PATIENT
  Age: 66 Year
  Sex: Female
  Weight: 47.17 kg

DRUGS (1)
  1. DUAVEE [Suspect]
     Active Substance: BAZEDOXIFENE ACETATE\ESTROGENS, CONJUGATED
     Indication: HORMONE REPLACEMENT THERAPY
     Dosage: UNK, 1X/DAY (.45MG/20MG TABLET, 1 TABLET ONCE A DAY AT NIGHT BY MOUTH)
     Route: 048

REACTIONS (3)
  - Hyperhidrosis [Not Recovered/Not Resolved]
  - Dysphonia [Unknown]
  - Hot flush [Not Recovered/Not Resolved]
